FAERS Safety Report 8494754-5 (Version None)
Quarter: 2012Q3

REPORT INFORMATION
  Report Type: 
  Country: None (occurrence: None)
  Receive Date: 20120709
  Receipt Date: 20120701
  Transmission Date: 20120928
  Serious: No
  Sender: FDA-Public Use
  Company Number: US-BAYER-2012-067633

PATIENT

DRUGS (2)
  1. ALEVE (CAPLET) [Suspect]
     Dosage: 4 U, UNK
     Route: 048
  2. ACETAMINOPHEN [Interacting]

REACTIONS (1)
  - NO ADVERSE EVENT [None]
